FAERS Safety Report 5850729-3 (Version None)
Quarter: 2008Q3

REPORT INFORMATION
  Report Type: 
  Country: None (occurrence: None)
  Receive Date: 20080819
  Receipt Date: 20080819
  Transmission Date: 20090109
  Serious: Yes (Hospitalization)
  Sender: FDA-Public Use
  Company Number: None

PATIENT
  Age: 29 Year
  Sex: Male
  Weight: 96.1626 kg

DRUGS (1)
  1. SOLUMEDROL   UNKNOWN [Suspect]
     Indication: URTICARIA
     Dosage: ONCE
     Dates: start: 20080531, end: 20080531

REACTIONS (3)
  - DRUG HYPERSENSITIVITY [None]
  - ROAD TRAFFIC ACCIDENT [None]
  - SYNCOPE [None]
